FAERS Safety Report 25797162 (Version 1)
Quarter: 2025Q3

REPORT INFORMATION
  Report Type: Spontaneous
  Country: US (occurrence: US)
  Receive Date: 20250912
  Receipt Date: 20250912
  Transmission Date: 20251020
  Serious: No
  Sender: BIOMARIN
  Company Number: US-BIOMARINAP-US-2025-168667

PATIENT
  Sex: Male
  Weight: 80.726 kg

DRUGS (4)
  1. PALYNZIQ [Suspect]
     Active Substance: PEGVALIASE-PQPZ
     Indication: Phenylketonuria
     Dosage: 40 MILLIGRAM, QD
  2. Phenex 2 [Concomitant]
     Indication: Product used for unknown indication
  3. ZYRTEC [Concomitant]
     Active Substance: CETIRIZINE HYDROCHLORIDE
     Indication: Product used for unknown indication
  4. PEPCID [Concomitant]
     Active Substance: FAMOTIDINE
     Indication: Product used for unknown indication

REACTIONS (1)
  - Arthralgia [Unknown]
